FAERS Safety Report 12345727 (Version 2)
Quarter: 2016Q2

REPORT INFORMATION
  Report Type: Report from Study
  Country: MX (occurrence: MX)
  Receive Date: 20160509
  Receipt Date: 20160606
  Transmission Date: 20160815
  Serious: Yes (Hospitalization, Disabling)
  Sender: FDA-Public Use
  Company Number: MX-ORION CORPORATION ORION PHARMA-ENTC2016-0223

PATIENT
  Sex: Female

DRUGS (1)
  1. STALEVO [Suspect]
     Active Substance: CARBIDOPA\ENTACAPONE\LEVODOPA
     Dosage: STRENGTH: 50/12.5/200 MG
     Route: 065

REACTIONS (12)
  - Tremor [Unknown]
  - Head titubation [Unknown]
  - Malaise [Unknown]
  - Movement disorder [Unknown]
  - Apallic syndrome [Unknown]
  - Swelling [Unknown]
  - Fluid retention [Unknown]
  - Gait disturbance [Unknown]
  - Eye disorder [Unknown]
  - Eating disorder [Unknown]
  - Speech disorder [Unknown]
  - Cerebral thrombosis [Unknown]
